FAERS Safety Report 9629451 (Version 4)
Quarter: 2014Q1

REPORT INFORMATION
  Report Type: Spontaneous
  Country: US (occurrence: US)
  Receive Date: 20131017
  Receipt Date: 20140212
  Transmission Date: 20141002
  Serious: No
  Sender: FDA-Public Use
  Company Number: US-PFIZER INC-2013295108

PATIENT
  Age: 43 Year
  Sex: Female

DRUGS (8)
  1. XELJANZ [Suspect]
     Indication: RHEUMATOID ARTHRITIS
     Dosage: 5 MG, 2X/DAY
     Route: 048
     Dates: start: 20130918
  2. PROZAC [Concomitant]
     Indication: DEPRESSION
     Dosage: UNK
  3. NEURONTIN [Concomitant]
     Dosage: UNK
  4. VITAMIN C [Concomitant]
     Dosage: UNK
  5. BELLADONNA [Concomitant]
     Dosage: UNK
  6. ACIDOPHILUS [Concomitant]
     Dosage: UNK
  7. METHOTREXATE [Concomitant]
     Dosage: UNK
  8. VALIUM [Concomitant]
     Dosage: UNK

REACTIONS (11)
  - Diarrhoea [Unknown]
  - Abdominal pain upper [Unknown]
  - Back pain [Unknown]
  - Chromaturia [Unknown]
  - Dehydration [Unknown]
  - Influenza like illness [Unknown]
  - Insomnia [Unknown]
  - Myalgia [Unknown]
  - Nausea [Unknown]
  - Nasopharyngitis [Unknown]
  - Dry mouth [Unknown]
